FAERS Safety Report 4377325-1 (Version None)
Quarter: 2004Q2

REPORT INFORMATION
  Report Type: 
  Country: None (occurrence: None)
  Receive Date: 20040609
  Receipt Date: 20040414
  Transmission Date: 20050107
  Serious: No
  Sender: FDA-Public Use
  Company Number: 2004209487US

PATIENT
  Age: 73 Year
  Sex: Female

DRUGS (1)
  1. BEXTRA [Suspect]
     Dosage: 10 MG, QD, ORAL
     Route: 048

REACTIONS (1)
  - CONTUSION [None]
